FAERS Safety Report 21212506 (Version 1)
Quarter: 2022Q3

REPORT INFORMATION
  Report Type: Spontaneous
  Country: US (occurrence: None)
  Receive Date: 20220812
  Receipt Date: 20220812
  Transmission Date: 20221027
  Serious: Yes (Other)
  Sender: FDA-Public Use
  Company Number: None

PATIENT
  Age: 39 Year
  Sex: Female
  Weight: 72 kg

DRUGS (12)
  1. CLINDAMYCIN [Suspect]
     Active Substance: CLINDAMYCIN
     Indication: Staphylococcal infection
     Dosage: OTHER QUANTITY : 1 CAPSULE(S);?FREQUENCY : 3 TIMES A DAY;?
     Route: 048
     Dates: start: 20220725, end: 20220728
  2. JOLESSA [Concomitant]
     Active Substance: ETHINYL ESTRADIOL\LEVONORGESTREL
  3. ARMOUR THYROID [Concomitant]
     Active Substance: THYROID, PORCINE
  4. methylcobalamin/folic acid IM injection [Concomitant]
  5. EPIPEN [Concomitant]
     Active Substance: EPINEPHRINE
  6. Ritual multivitamin [Concomitant]
  7. zyrtec PRN [Concomitant]
  8. benadryl PRN [Concomitant]
  9. Aleve PRN [Concomitant]
  10. tylonel PRN [Concomitant]
  11. vitamin D PRN [Concomitant]
  12. iron PRN [Concomitant]

REACTIONS (4)
  - Hypersensitivity [None]
  - Manufacturing materials issue [None]
  - Product quality issue [None]
  - Allergic reaction to excipient [None]

NARRATIVE: CASE EVENT DATE: 20220725
